FAERS Safety Report 7447816-5 (Version None)
Quarter: 2011Q2

REPORT INFORMATION
  Report Type: 
  Country: None (occurrence: None)
  Receive Date: 20110429
  Receipt Date: 20110415
  Transmission Date: 20111010
  Serious: Yes (Other)
  Sender: FDA-Public Use
  Company Number: IT-WATSON-2011-05747

PATIENT
  Age: 71 Year
  Sex: Female

DRUGS (2)
  1. DEXAMETHASONE (WATSON LABORATORIES) [Suspect]
     Indication: DIFFUSE LARGE B-CELL LYMPHOMA
     Dosage: 20 MG, 1/WEEK
     Route: 065
  2. LENALIDOMIDE [Suspect]
     Indication: DIFFUSE LARGE B-CELL LYMPHOMA

REACTIONS (1)
  - NEUTROPENIA [None]
